FAERS Safety Report 11823221 (Version 1)
Quarter: 2015Q4

REPORT INFORMATION
  Report Type: Spontaneous
  Country: US (occurrence: US)
  Receive Date: 20151210
  Receipt Date: 20151210
  Transmission Date: 20160305
  Serious: No
  Sender: FDA-Public Use
  Company Number: US-ENDO PHARMACEUTICALS INC.-2015-000966

PATIENT
  Sex: Female

DRUGS (2)
  1. FROVA [Suspect]
     Active Substance: FROVATRIPTAN SUCCINATE
     Indication: MIGRAINE
     Route: 065
  2. FROVA [Suspect]
     Active Substance: FROVATRIPTAN SUCCINATE
     Route: 065

REACTIONS (1)
  - Drug ineffective [Not Recovered/Not Resolved]
